FAERS Safety Report 25798718 (Version 1)
Quarter: 2025Q3

REPORT INFORMATION
  Report Type: Spontaneous
  Country: EU (occurrence: EU)
  Receive Date: 20250913
  Receipt Date: 20250913
  Transmission Date: 20251021
  Serious: Yes (Hospitalization)
  Sender: AUROBINDO
  Company Number: EU-AFSSAPS-PB2025001057

PATIENT
  Age: 74 Year
  Sex: Female
  Weight: 40.5 kg

DRUGS (1)
  1. BISOPROLOL [Suspect]
     Active Substance: BISOPROLOL
     Indication: Conduction disorder
     Dosage: 3.75 MILLIGRAM, ONCE A DAY (1 CP ET 1/2 DE 2.5 MG)
     Route: 048
     Dates: start: 2025

REACTIONS (3)
  - Bradycardia [Recovered/Resolved]
  - Conduction disorder [Recovered/Resolved]
  - Condition aggravated [Recovered/Resolved]

NARRATIVE: CASE EVENT DATE: 20250803
